FAERS Safety Report 8174074-9 (Version None)
Quarter: 2012Q1

REPORT INFORMATION
  Report Type: 
  Country: None (occurrence: None)
  Receive Date: 20120224
  Receipt Date: 20120215
  Transmission Date: 20120608
  Serious: Yes (Disabling)
  Sender: FDA-Public Use
  Company Number: 2012SP002387

PATIENT
  Age: 41 Year
  Sex: Female

DRUGS (2)
  1. REBETOL [Suspect]
     Indication: HEPATITIS C
     Dosage: 800 MG; QD; PO
     Route: 048
     Dates: start: 20111105, end: 20111215
  2. PEGINTERFERON ALFA-2B [Suspect]
     Indication: HEPATITIS C
     Dosage: 90 MCG;QW;SC
     Route: 058
     Dates: start: 20111105, end: 20111215

REACTIONS (6)
  - DERMATITIS ALLERGIC [None]
  - WHEEZING [None]
  - FATIGUE [None]
  - IRRITABILITY [None]
  - FACIAL SPASM [None]
  - SPEECH DISORDER [None]
